FAERS Safety Report 5052597-9 (Version None)
Quarter: 2006Q3

REPORT INFORMATION
  Report Type: 
  Country: None (occurrence: None)
  Receive Date: 20060717
  Receipt Date: 20060704
  Transmission Date: 20061208
  Serious: Yes (Other)
  Sender: FDA-Public Use
  Company Number: JP-JPN-A200602472

PATIENT
  Sex: Male

DRUGS (1)
  1. ZOVIRAX [Suspect]
     Route: 042

REACTIONS (2)
  - BONE MARROW FAILURE [None]
  - HYPOAESTHESIA [None]
